FAERS Safety Report 4407492-2 (Version None)
Quarter: 2004Q3

REPORT INFORMATION
  Report Type: 
  Country: None (occurrence: None)
  Receive Date: 20040721
  Receipt Date: 20040709
  Transmission Date: 20050211
  Serious: Yes (Hospitalization)
  Sender: FDA-Public Use
  Company Number: ZONI001456

PATIENT
  Age: 23 Year
  Sex: Male

DRUGS (3)
  1. EXCEGRAN (ZONISAMIDE) [Suspect]
     Indication: CONVULSION
     Dosage: 300 MG DAILY ORAL
     Route: 048
     Dates: start: 20040311, end: 20040617
  2. MYSTAN (CLOBAZAM) [Concomitant]
  3. VALPROATE SODIUM [Concomitant]

REACTIONS (2)
  - NEUTROPENIA [None]
  - PLATELET COUNT DECREASED [None]
